FAERS Safety Report 5494468-X (Version None)
Quarter: 2007Q4

REPORT INFORMATION
  Report Type: 
  Country: None (occurrence: None)
  Receive Date: 20071022
  Receipt Date: 20071005
  Transmission Date: 20080405
  Serious: Yes (Death, Hospitalization)
  Sender: FDA-Public Use
  Company Number: S07-FRA-05477-01

PATIENT
  Age: 82 Year
  Sex: Female

DRUGS (8)
  1. CITALOPRAM HYDROBROMIDE [Suspect]
     Dosage: 20 MG QD PO
     Route: 048
     Dates: start: 20060715, end: 20070502
  2. ARICEPT [Suspect]
     Dosage: 10 MG QD PO
     Route: 048
     Dates: start: 20060715, end: 20070502
  3. OMEPRAZOLE [Suspect]
     Dates: start: 20060715, end: 20070502
  4. CETORNAN (ORNITHINE OXOGLURATE) [Suspect]
     Dosage: 5 G BID PO
     Route: 048
     Dates: start: 20070401, end: 20070502
  5. SILOMAT (CLOBUTINOL HYDROCHLORIDE) [Concomitant]
  6. ALDACTONE [Concomitant]
  7. NPH INSULIN (INSULIN INJECTION, ISOPHANE) [Concomitant]
  8. NITRIDERM TTS (GLYCERYL TRINITRATE) [Concomitant]

REACTIONS (11)
  - ARRHYTHMIA [None]
  - BLOOD CREATININE INCREASED [None]
  - CARDIOMEGALY [None]
  - COAGULATION FACTOR V LEVEL DECREASED [None]
  - DEHYDRATION [None]
  - DYSPNOEA [None]
  - ELECTROCARDIOGRAM REPOLARISATION ABNORMALITY [None]
  - HEPATITIS [None]
  - INCREASED BRONCHIAL SECRETION [None]
  - OEDEMA PERIPHERAL [None]
  - PLEURAL EFFUSION [None]
